FAERS Safety Report 5870941-7 (Version None)
Quarter: 2008Q3

REPORT INFORMATION
  Report Type: 
  Country: None (occurrence: None)
  Receive Date: 20080904
  Receipt Date: 20080829
  Transmission Date: 20090109
  Serious: Yes (Other)
  Sender: FDA-Public Use
  Company Number: BR-ASTRAZENECA-2008UW10829

PATIENT
  Age: 35 Year
  Sex: Female

DRUGS (5)
  1. BUDECORT NASAL [Suspect]
     Indication: RHINITIS
     Route: 045
     Dates: start: 20080401, end: 20080501
  2. DRAMIN [Concomitant]
     Indication: NAUSEA
     Dates: start: 20080301
  3. TYLENOL (CAPLET) [Concomitant]
     Indication: MUSCLE SPASMS
     Dates: start: 20080301
  4. BUSCOPAN [Concomitant]
     Indication: MUSCLE SPASMS
     Dates: start: 20080301
  5. FOLIC ACID [Concomitant]

REACTIONS (2)
  - DRUG EXPOSURE DURING PREGNANCY [None]
  - PLACENTA PRAEVIA [None]
